FAERS Safety Report 4333525-8 (Version None)
Quarter: 2004Q1

REPORT INFORMATION
  Report Type: 
  Country: None (occurrence: None)
  Receive Date: 20040325
  Receipt Date: 20040116
  Transmission Date: 20041129
  Serious: No
  Sender: FDA-Public Use
  Company Number: USA040155762

PATIENT
  Age: 77 Year
  Sex: Female

DRUGS (5)
  1. FORTEO [Suspect]
     Indication: OSTEOPOROSIS
     Dates: start: 20030501, end: 20031226
  2. SYNTHROID [Concomitant]
  3. CRESTOR (ROSUVASTATIN) [Concomitant]
  4. PROTONIX [Concomitant]
  5. LIPITOR [Concomitant]

REACTIONS (10)
  - ASTHENIA [None]
  - BLOOD CALCIUM INCREASED [None]
  - CARDIAC FLUTTER [None]
  - DIZZINESS [None]
  - EXTRASYSTOLES [None]
  - HEART RATE IRREGULAR [None]
  - INJECTION SITE BURNING [None]
  - MUSCLE CRAMP [None]
  - MUSCULAR WEAKNESS [None]
  - RASH ERYTHEMATOUS [None]
